FAERS Safety Report 18510976 (Version 1)
Quarter: 2020Q4

REPORT INFORMATION
  Report Type: Spontaneous
  Country: CN (occurrence: CN)
  Receive Date: 20201117
  Receipt Date: 20201117
  Transmission Date: 20210114
  Serious: Yes (Other)
  Sender: FDA-Public Use
  Company Number: CN-JNJFOC-20201115213

PATIENT

DRUGS (2)
  1. PARACETAMOL [Suspect]
     Active Substance: ACETAMINOPHEN
     Indication: PRODUCT USED FOR UNKNOWN INDICATION
     Route: 048
  2. IBUPROFEN. [Suspect]
     Active Substance: IBUPROFEN
     Indication: PRODUCT USED FOR UNKNOWN INDICATION
     Route: 048

REACTIONS (13)
  - Hypersensitivity [Unknown]
  - Haemorrhage [Unknown]
  - Dyspepsia [Unknown]
  - Nausea [Unknown]
  - Gastrointestinal ulcer haemorrhage [Unknown]
  - Vomiting [Unknown]
  - Nerve injury [Unknown]
  - Rash [Unknown]
  - Liver injury [Unknown]
  - Arrhythmia [Unknown]
  - Diarrhoea [Unknown]
  - Renal injury [Unknown]
  - Abdominal distension [Unknown]
